FAERS Safety Report 11679966 (Version 3)
Quarter: 2015Q4

REPORT INFORMATION
  Report Type: Spontaneous
  Country: US (occurrence: US)
  Receive Date: 20151027
  Receipt Date: 20151110
  Transmission Date: 20160304
  Serious: No
  Sender: FDA-Public Use
  Company Number: US-ELI_LILLY_AND_COMPANY-US201001001195

PATIENT
  Age: 67 Year
  Sex: Male

DRUGS (23)
  1. ALIGN [Concomitant]
     Active Substance: BIFIDOBACTERIUM LONGUM SUBSP. INFANTIS
     Dosage: UNK, OTHER
  2. VITAMIN C [Concomitant]
     Active Substance: ASCORBIC ACID
     Dosage: 500 MG, QD
  3. VITAMIN E                            /001105/ [Concomitant]
     Dosage: UNK, QD
  4. NASAL SPRAY [Concomitant]
     Active Substance: UNSPECIFIED INGREDIENT
  5. FLUTICASONE [Concomitant]
     Active Substance: FLUTICASONE\FLUTICASONE PROPIONATE
     Dosage: UNK, PRN
  6. FOLIC ACID. [Concomitant]
     Active Substance: FOLIC ACID
     Dosage: 1000 MG, QD
  7. ASACOL [Concomitant]
     Active Substance: MESALAMINE
     Dosage: UNK UNK, TID
  8. MUCINEX [Concomitant]
     Active Substance: GUAIFENESIN
     Dosage: 600 MG, EACH EVENING
  9. AYR SALINE [Concomitant]
     Dosage: UNK, PRN
  10. SYSTANE (HYPROMELLOSE 2910 (4000 MPA.S)) [Concomitant]
     Active Substance: HYPROMELLOSE 2910 (4000 MPA.S)
  11. METAMUCIL [Concomitant]
     Active Substance: PLANTAGO SEED
     Dosage: UNK UNK, BID
  12. GENTAMICIN. [Concomitant]
     Active Substance: GENTAMICIN
  13. MUCINEX [Concomitant]
     Active Substance: GUAIFENESIN
     Dosage: 1200 MG, EACH MORNING
  14. LUTEIN [Concomitant]
     Active Substance: LUTEIN
     Dosage: 6 MG, QD
  15. PROAIR HFA [Concomitant]
     Active Substance: ALBUTEROL SULFATE
  16. VITAMIN D3 [Concomitant]
     Active Substance: CHOLECALCIFEROL
     Dosage: 1000 IU, TID
  17. FORTEO [Suspect]
     Active Substance: TERIPARATIDE
     Indication: OSTEOPOROSIS
     Dosage: 20 UG, DAILY (1/D)
     Route: 065
     Dates: start: 20091215
  18. FORTEO [Suspect]
     Active Substance: TERIPARATIDE
     Dosage: 20 UG, DAILY (1/D)
     Route: 065
     Dates: end: 20110622
  19. SINGULAIR [Concomitant]
     Active Substance: MONTELUKAST SODIUM
     Dosage: 10 MG, QD
  20. NEXIUM [Concomitant]
     Active Substance: ESOMEPRAZOLE MAGNESIUM
     Dosage: 40 MG, QD
  21. GERMANIUM [Concomitant]
  22. SALINE ORAL OTC [Concomitant]
     Active Substance: SODIUM CHLORIDE
     Dosage: 240 ML, UNK
  23. CALCIUM CITRATE W/COLECALCIFEROL [Concomitant]
     Dosage: 600 MG, BID

REACTIONS (14)
  - Dyspnoea [Unknown]
  - Pulmonary mass [Unknown]
  - Fatigue [Unknown]
  - Pain [Recovering/Resolving]
  - Muscular weakness [Unknown]
  - Hypotension [Not Recovered/Not Resolved]
  - Bone density decreased [Unknown]
  - Arthralgia [Recovered/Resolved]
  - Heart rate irregular [Unknown]
  - Intentional product misuse [Unknown]
  - Heart rate increased [Unknown]
  - Chest discomfort [Unknown]
  - Bone pain [Recovering/Resolving]
  - Chest pain [Not Recovered/Not Resolved]

NARRATIVE: CASE EVENT DATE: 20101014
